FAERS Safety Report 24935288 (Version 1)
Quarter: 2025Q1

REPORT INFORMATION
  Report Type: Spontaneous
  Country: DE (occurrence: DE)
  Receive Date: 20250206
  Receipt Date: 20250206
  Transmission Date: 20250409
  Serious: Yes (Hospitalization, Other)
  Sender: ALKEM
  Company Number: DE-ALKEM LABORATORIES LIMITED-DE-ALKEM-2024-15696

PATIENT
  Age: 25 Year
  Sex: Male

DRUGS (4)
  1. EZETIMIBE [Suspect]
     Active Substance: EZETIMIBE
     Indication: Pancreatitis acute
     Dosage: 10 MILLIGRAM, QD (EVERY 1 DAY)
     Route: 065
  2. FENOFIBRATE [Concomitant]
     Active Substance: FENOFIBRATE
     Indication: Pancreatitis acute
     Dosage: 160 MILLIGRAM, QD (EVERY 1 DAY), (MICRONIZED)
     Route: 065
  3. VOLANESORSEN [Concomitant]
     Active Substance: VOLANESORSEN
     Indication: Pancreatitis acute
     Dosage: UNK, ONCE IN 2 WEEKS
     Route: 065
  4. VOLANESORSEN [Concomitant]
     Active Substance: VOLANESORSEN
     Dosage: UNK, ONCE WEEKLY
     Route: 065

REACTIONS (1)
  - Drug ineffective for unapproved indication [Unknown]
